FAERS Safety Report 8914374 (Version 1)
Quarter: 2012Q4

REPORT INFORMATION
  Report Type: 
  Country: US (occurrence: US)
  Receive Date: 20121118
  Receipt Date: 20121118
  Transmission Date: 20130627
  Serious: No
  Sender: FDA-Public Use
  Company Number: US-009507513-1211USA005537

PATIENT
  Age: 60 Year
  Sex: Female
  Weight: 72.56 kg

DRUGS (12)
  1. VICTRELIS [Suspect]
     Dosage: 800 mg, tid
     Route: 048
  2. RIBAPAK [Suspect]
     Dosage: 1000/day
  3. PEGASYS [Suspect]
     Dosage: 180 Microgram, qm
  4. EFFEXOR XR [Concomitant]
  5. ZYRTEC [Concomitant]
  6. LISINOPRIL [Concomitant]
  7. METOPROLOL [Concomitant]
  8. NEXIUM [Concomitant]
  9. HYDROCODONE/APAP [Concomitant]
  10. CHONDROITIN SULFATE SODIUM (+) GLUCOSAMINE SULFATE [Concomitant]
  11. ALEVE [Concomitant]
  12. VITAMINS (UNSPECIFIED) [Concomitant]

REACTIONS (4)
  - Stomatitis [Unknown]
  - Nausea [Unknown]
  - Vomiting [Unknown]
  - Dizziness [Unknown]
